FAERS Safety Report 13135078 (Version 1)
Quarter: 2017Q1

REPORT INFORMATION
  Report Type: Other
  Country: None (occurrence: US)
  Receive Date: 20170120
  Receipt Date: 20170120
  Transmission Date: 20170428
  Serious: Yes (Other)
  Sender: FDA-Public Use
  Company Number: US-GUTHY-RENKER LLC-1062229

PATIENT
  Age: 61 Year
  Sex: Female

DRUGS (3)
  1. VITAMIN C, FISH OIL [Concomitant]
  2. MEANINGFUL BEAUTY CINDY CRAWFORD ANTIOXIDANT SPF 20 UVA/UVB [Suspect]
     Active Substance: AVOBENZONE\OCTINOXATE\OCTISALATE\OXYBENZONE
     Indication: PROPHYLAXIS AGAINST SOLAR RADIATION
     Route: 061
     Dates: start: 20170106, end: 20170112
  3. UNDISCLOSED BLOOD THINNER, TOPROL, OTHER UNDISCLOSED MEDICATIONS [Concomitant]

REACTIONS (2)
  - Bronchospasm [Recovering/Resolving]
  - Urticaria [None]

NARRATIVE: CASE EVENT DATE: 20170112
